FAERS Safety Report 23676321 (Version 1)
Quarter: 2024Q1

REPORT INFORMATION
  Report Type: Spontaneous
  Country: US (occurrence: US)
  Receive Date: 20240327
  Receipt Date: 20240327
  Transmission Date: 20240410
  Serious: No
  Sender: FDA-Public Use
  Company Number: US-ABBVIE-5694263

PATIENT
  Age: 43 Year
  Sex: Male

DRUGS (1)
  1. BOTOX [Suspect]
     Active Substance: ONABOTULINUMTOXINA
     Indication: Hyperhidrosis
     Dosage: TIME INTERVAL: AS NECESSARY
     Route: 065
     Dates: start: 20240319, end: 20240319

REACTIONS (1)
  - Injection site infection [Not Recovered/Not Resolved]

NARRATIVE: CASE EVENT DATE: 20240320
